FAERS Safety Report 11863877 (Version 1)
Quarter: 2015Q4

REPORT INFORMATION
  Report Type: Spontaneous
  Country: FR (occurrence: FR)
  Receive Date: 20151223
  Receipt Date: 20151223
  Transmission Date: 20160305
  Serious: Yes (Death, Other)
  Sender: FDA-Public Use
  Company Number: FR-PFIZER INC-2015451632

PATIENT
  Age: 73 Year
  Sex: Male

DRUGS (17)
  1. ERBITUX [Suspect]
     Active Substance: CETUXIMAB
     Dosage: UNK
     Route: 042
     Dates: start: 20150318, end: 20150318
  2. AMLOR [Concomitant]
     Active Substance: AMLODIPINE BESYLATE
  3. CARBOPLATIN. [Suspect]
     Active Substance: CARBOPLATIN
     Indication: NEOPLASM MALIGNANT
     Dosage: UNK
     Route: 042
     Dates: start: 20150318, end: 20150318
  4. ERBITUX [Suspect]
     Active Substance: CETUXIMAB
     Dosage: UNK
     Route: 042
     Dates: start: 20150326, end: 20150326
  5. IMOVANE [Concomitant]
     Active Substance: ZOPICLONE
  6. TOLEXINE [Suspect]
     Active Substance: DOXYCYCLINE
     Dosage: UNK
     Route: 048
     Dates: start: 20150313
  7. SECTRAL [Concomitant]
     Active Substance: ACEBUTOLOL HYDROCHLORIDE
  8. FORLAX [Concomitant]
     Active Substance: POLYETHYLENE GLYCOL 4000
  9. LYRICA [Suspect]
     Active Substance: PREGABALIN
     Dosage: UNK
     Route: 048
     Dates: start: 20150326
  10. COVERSYL [Concomitant]
     Active Substance: PERINDOPRIL
  11. KARDEGIC [Concomitant]
     Active Substance: ASPIRIN LYSINE
  12. INNOHEP [Concomitant]
     Active Substance: TINZAPARIN SODIUM
     Dosage: UNK
     Dates: start: 20150220, end: 201504
  13. TAHOR [Concomitant]
     Active Substance: ATORVASTATIN CALCIUM
  14. CORDARONE [Concomitant]
     Active Substance: AMIODARONE HYDROCHLORIDE
  15. EUPANTOL [Concomitant]
     Active Substance: PANTOPRAZOLE SODIUM
  16. ERBITUX [Suspect]
     Active Substance: CETUXIMAB
     Indication: METASTATIC SQUAMOUS CELL CARCINOMA
     Dosage: UNK
     Route: 042
     Dates: start: 20150313, end: 20150313
  17. BACTRIM [Suspect]
     Active Substance: SULFAMETHOXAZOLE\TRIMETHOPRIM
     Dosage: UNK
     Route: 048
     Dates: start: 20150326

REACTIONS (6)
  - Left ventricular failure [Fatal]
  - Renal failure [Unknown]
  - Dyspnoea [Fatal]
  - Anaemia [Fatal]
  - Infection [Fatal]
  - Lymphangiosis carcinomatosa [Fatal]

NARRATIVE: CASE EVENT DATE: 20150330
